FAERS Safety Report 14109912 (Version 1)
Quarter: 2017Q4

REPORT INFORMATION
  Report Type: Spontaneous
  Country: US (occurrence: US)
  Receive Date: 20171020
  Receipt Date: 20171020
  Transmission Date: 20180321
  Serious: No
  Sender: FDA-Public Use
  Company Number: US-TEVA-735567ACC

PATIENT
  Sex: Female

DRUGS (1)
  1. EQUATE MICONAZOLE 3 [Suspect]
     Active Substance: MICONAZOLE
     Dates: start: 20161109, end: 20161109

REACTIONS (2)
  - Vaginal haemorrhage [Recovered/Resolved]
  - Product colour issue [Unknown]

NARRATIVE: CASE EVENT DATE: 20161110
